FAERS Safety Report 4594912-6 (Version None)
Quarter: 2005Q1

REPORT INFORMATION
  Report Type: 
  Country: None (occurrence: None)
  Receive Date: 20050225
  Receipt Date: 20050211
  Transmission Date: 20050727
  Serious: Yes (Death, Other)
  Sender: FDA-Public Use
  Company Number: USA-2003-0011233

PATIENT
  Sex: Male
  Weight: 99.8 kg

DRUGS (4)
  1. OXYCONTIN [Suspect]
     Indication: PAIN
  2. BENZODIAZEPINES [Suspect]
     Indication: PAIN
  3. CAFFEINE(CAFFEINE) [Suspect]
  4. NICOTINE [Suspect]

REACTIONS (5)
  - COMPLETED SUICIDE [None]
  - DRUG ABUSER [None]
  - DRUG DEPENDENCE [None]
  - GUN SHOT WOUND [None]
  - TRAUMATIC BRAIN INJURY [None]
